FAERS Safety Report 6295127-6 (Version None)
Quarter: 2009Q3

REPORT INFORMATION
  Report Type: 
  Country: None (occurrence: None)
  Receive Date: 20090803
  Receipt Date: 20090609
  Transmission Date: 20100115
  Serious: Yes (Hospitalization)
  Sender: FDA-Public Use
  Company Number: US-PURDUE-USA-2009-0038984

PATIENT
  Sex: Female

DRUGS (2)
  1. OXYCONTIN [Suspect]
     Indication: BACK PAIN
     Dosage: 20 MG, BID
     Route: 048
     Dates: start: 20000105, end: 20030312
  2. OXYCONTIN [Suspect]
     Indication: PAIN IN EXTREMITY

REACTIONS (4)
  - HALLUCINATION [None]
  - MENTAL DISORDER [None]
  - PARANOIA [None]
  - THINKING ABNORMAL [None]
